FAERS Safety Report 8967635 (Version 1)
Quarter: 2012Q4

REPORT INFORMATION
  Report Type: Spontaneous
  Country: PL (occurrence: None)
  Receive Date: 20121204
  Receipt Date: 20121204
  Transmission Date: 20130627
  Serious: Yes (Hospitalization)
  Sender: FDA-Public Use
  Company Number: 2012DEPPL00458

PATIENT
  Age: 21 Year
  Sex: Female
  Weight: 47 kg

DRUGS (4)
  1. DEPOCYTE (CYTARABINE) LIPOSOME INJECTABLE SUSPENSION, MG [Suspect]
     Route: 037
     Dates: start: 20121008, end: 20121008
  2. DEPOCYTE (CYTARABINE) LIPOSOME INJECTABLE SUSPENSION, MG [Suspect]
     Dates: start: 20120622
  3. DEPOCYTE (CYTARABINE) LIPOSOME INJECTABLE SUSPENSION, MG [Suspect]
     Dates: start: 20120710
  4. DEPOCYTE (CYTARABINE) LIPOSOME INJECTABLE SUSPENSION, MG [Suspect]
     Dates: start: 20120813

REACTIONS (3)
  - Strabismus [None]
  - Headache [None]
  - Visual impairment [None]
